FAERS Safety Report 4506899-2 (Version None)
Quarter: 2004Q4

REPORT INFORMATION
  Report Type: 
  Country: None (occurrence: None)
  Receive Date: 20041117
  Receipt Date: 20041105
  Transmission Date: 20050328
  Serious: Yes (Other)
  Sender: FDA-Public Use
  Company Number: 2004074436

PATIENT
  Age: 49 Year
  Sex: Male
  Weight: 62.8 kg

DRUGS (15)
  1. DIFLUCAN [Suspect]
     Indication: PNEUMONITIS CRYPTOCOCCAL
     Dosage: 200 MG (100 MG, 2 IN 1 D), ORAL
     Route: 048
     Dates: start: 20040915, end: 20040928
  2. PHENYTOIN [Suspect]
     Indication: EPILEPSY
     Dosage: 280 MG (1D), ORAL
     Route: 048
  3. DIAZEPAM [Suspect]
     Indication: EPILEPSY
     Dosage: 6 MG (1 D), ORAL
     Route: 048
  4. VALPROATE SODIUM [Suspect]
  5. ZONISAMIDE (ZONISAMIDE) [Concomitant]
  6. CLONAZEPAM [Concomitant]
  7. TRIHEXYPHENDIDYL HYDROCHLORIDE (TRIHEXYPHENIDYL HYDROCHLORIDE) [Concomitant]
  8. HALOPERIDOL [Concomitant]
  9. ZOPICLONE (ZOPICLONE) [Concomitant]
  10. FLUNITRAZEPAM (FLUNITRAZEPAM) [Concomitant]
  11. CLOBAZAM (CLOBAZAM) [Concomitant]
  12. SENNOSIDE A+B (SENNOSIDE A+B) [Concomitant]
  13. ALOSENN (ACHILLEA, RUBIA ROOT TINCTURE, SENNA FRUIT, SENNA LEAF [Concomitant]
  14. FAMOTIDINE [Concomitant]
  15. GLORIAMIN (AZULENE SODIUM SULFONATE, LEVOGLUTAMIDE) [Concomitant]

REACTIONS (4)
  - ABASIA [None]
  - ASTHENIA [None]
  - DIZZINESS [None]
  - DRUG LEVEL INCREASED [None]
